FAERS Safety Report 13834673 (Version 2)
Quarter: 2017Q3

REPORT INFORMATION
  Report Type: Spontaneous
  Country: US (occurrence: US)
  Receive Date: 20170804
  Receipt Date: 20170828
  Transmission Date: 20171127
  Serious: Yes (Hospitalization, Other)
  Sender: FDA-Public Use
  Company Number: US-GLAXOSMITHKLINE-US2017119793

PATIENT
  Age: 46 Year
  Sex: Male

DRUGS (2)
  1. LAMICTAL [Suspect]
     Active Substance: LAMOTRIGINE
     Indication: SEIZURE
     Dosage: 100 MG, BID
     Route: 048
     Dates: start: 2013
  2. KEPPRA XR [Concomitant]
     Active Substance: LEVETIRACETAM

REACTIONS (3)
  - Seizure [Recovered/Resolved]
  - Prescribed overdose [Unknown]
  - Drug dose omission [Unknown]

NARRATIVE: CASE EVENT DATE: 201707
